FAERS Safety Report 15759540 (Version 3)
Quarter: 2019Q2

REPORT INFORMATION
  Report Type: Spontaneous
  Country: FR (occurrence: FR)
  Receive Date: 20181226
  Receipt Date: 20190603
  Transmission Date: 20190711
  Serious: Yes (Death, Hospitalization)
  Sender: FDA-Public Use
  Company Number: FR-SUN PHARMACEUTICAL INDUSTRIES LTD-2018RR-194578

PATIENT
  Age: 65 Year
  Sex: Male
  Weight: 55.1 kg

DRUGS (15)
  1. PENTACARINAT [Concomitant]
     Active Substance: PENTAMIDINE ISETHIONATE
     Indication: ANTIFUNGAL PROPHYLAXIS
     Dosage: (1)
     Route: 055
     Dates: start: 20181001, end: 20181001
  2. DOLIPRANE [Concomitant]
     Active Substance: ACETAMINOPHEN
     Indication: ANALGESIC INTERVENTION SUPPORTIVE THERAPY
     Dosage: 3 GRAM, QD
     Route: 048
  3. RITONAVIR MYLAN 100 MG, COMPRIME PELLICULE [Concomitant]
     Indication: HIV INFECTION
     Dosage: 100 MILLIGRAM, QD
     Route: 048
  4. LEVETIRACETAM. [Suspect]
     Active Substance: LEVETIRACETAM
     Indication: EPILEPSY
     Dosage: 14 MILLILITER, QD
     Route: 048
  5. ZIAGEN 300 MG, COMPRIME PELLICULE [Concomitant]
     Indication: HIV INFECTION
     Dosage: 600 MILLIGRAM, QD
     Route: 048
  6. CORTANCYL [Concomitant]
     Active Substance: PREDNISONE
     Indication: NEPHROTIC SYNDROME
     Dosage: 5 MILLIGRAM, QD
     Route: 048
  7. RISPERDAL [Suspect]
     Active Substance: RISPERIDONE
     Indication: PSYCHOTIC DISORDER
     Dosage: 0.5 MILLIGRAM, QD
     Route: 048
     Dates: start: 20181106
  8. RAMIPRIL. [Concomitant]
     Active Substance: RAMIPRIL
     Indication: HYPERTENSION
     Dosage: 10 MILLIGRAM, QD
     Route: 048
  9. LAMIVUDINE. [Concomitant]
     Active Substance: LAMIVUDINE
     Indication: HIV INFECTION
     Dosage: 150 MILLIGRAM, BID
     Route: 048
  10. DEPAKINE [Suspect]
     Active Substance: VALPROATE SODIUM
     Indication: EPILEPSY
     Dosage: 2500 MILLIGRAM, QD
     Route: 048
  11. PREZISTA 800 MG, COMPRIME PELLICULE [Concomitant]
     Indication: HIV INFECTION
     Dosage: 800 MILLIGRAM, QD
     Route: 048
  12. CALCIPARINE [Concomitant]
     Active Substance: HEPARIN CALCIUM
     Indication: ANTICOAGULANT THERAPY
     Dosage: 0.4 MILLILITER, QD
     Route: 058
     Dates: start: 20181008, end: 20181118
  13. IMOVANE [Concomitant]
     Active Substance: ZOPICLONE
     Indication: INSOMNIA
     Dosage: 7.5 MILLIGRAM, QD
     Route: 048
     Dates: start: 20181015
  14. ARANESP [Concomitant]
     Active Substance: DARBEPOETIN ALFA
     Indication: ANAEMIA
     Dosage: 40 MICROGRAM, 1/WEEK
     Route: 058
  15. CHLORURE DE SODIUM BAXTER 0,9 POUR CENT, SOLUTION POUR PERFUSION [Concomitant]
     Indication: FLUID REPLACEMENT
     Dosage: 1000 MILLILITER, QD
     Route: 058
     Dates: start: 20181031

REACTIONS (2)
  - Multiple organ dysfunction syndrome [Fatal]
  - Hypothermia [Recovered/Resolved]

NARRATIVE: CASE EVENT DATE: 20181107
